FAERS Safety Report 8222464-8 (Version None)
Quarter: 2012Q1

REPORT INFORMATION
  Report Type: 
  Country: None (occurrence: None)
  Receive Date: 20120320
  Receipt Date: 20120316
  Transmission Date: 20120608
  Serious: Yes (Other)
  Sender: FDA-Public Use
  Company Number: PHFR2010IE04571

PATIENT
  Sex: Male
  Weight: 70 kg

DRUGS (6)
  1. CLOZARIL [Suspect]
     Indication: SCHIZOPHRENIA
     Dosage: 400 MG
     Route: 048
     Dates: start: 19980717, end: 20101007
  2. CLONAZEPAM [Concomitant]
     Dosage: 0.5 MG, BID
  3. HALOPERIDOL [Concomitant]
     Dosage: 5 MG, TID
  4. VALPROIC ACID [Concomitant]
     Dosage: 1200 MG, AT NIGHT
  5. OLANZAPINE [Concomitant]
     Dosage: 20 MG, NIGHT
  6. LAMOTRIGINE [Concomitant]
     Dosage: 100 MG, BID

REACTIONS (9)
  - EMOTIONAL DISTRESS [None]
  - FEELING ABNORMAL [None]
  - RHINORRHOEA [None]
  - PALLOR [None]
  - FALL [None]
  - DELUSIONAL PERCEPTION [None]
  - NEUTROPHIL COUNT DECREASED [None]
  - VISUAL IMPAIRMENT [None]
  - LEUKOPENIA [None]
